FAERS Safety Report 5023382-9 (Version None)
Quarter: 2006Q2

REPORT INFORMATION
  Report Type: 
  Country: None (occurrence: None)
  Receive Date: 20060606
  Receipt Date: 20060522
  Transmission Date: 20061013
  Serious: Yes (Hospitalization, Other)
  Sender: FDA-Public Use
  Company Number: USA-2006-0024274

PATIENT
  Sex: Male

DRUGS (1)
  1. MS CONTIN [Suspect]
     Indication: BACK PAIN
     Dosage: 15 MG, Q12H,
     Dates: start: 20040601, end: 20040601

REACTIONS (7)
  - ASTHENIA [None]
  - BLOOD PRESSURE DECREASED [None]
  - CHEST DISCOMFORT [None]
  - CHEST PAIN [None]
  - POST-TRAUMATIC STRESS DISORDER [None]
  - RESPIRATORY DEPRESSION [None]
  - RESPIRATORY FAILURE [None]
